FAERS Safety Report 4946420-8 (Version None)
Quarter: 2006Q1

REPORT INFORMATION
  Report Type: 
  Country: None (occurrence: None)
  Receive Date: 20060313
  Receipt Date: 20060224
  Transmission Date: 20060701
  Serious: Yes (Death, Hospitalization)
  Sender: FDA-Public Use
  Company Number: 2005-02530

PATIENT
  Age: 63 Year
  Sex: Male

DRUGS (13)
  1. VELCADE [Suspect]
     Indication: MULTIPLE MYELOMA
  2. THALIDOMIDE [Suspect]
     Indication: MULTIPLE MYELOMA
     Dosage: 100.00 MG, QD, ORAL
     Route: 048
     Dates: start: 20040927, end: 20051018
  3. ALLEGRA [Concomitant]
  4. MULTIVITAMINS (ERGOCALCIFEROL, PANTHENOL, NICOTINAMIDE, RIBOFLAVIN, TH [Concomitant]
  5. PRAVACHOL [Concomitant]
  6. QUININE [Concomitant]
  7. COLACE (DOCUSATE SODIUM) [Concomitant]
  8. SENOKOT [Concomitant]
  9. SPIRIVA [Concomitant]
  10. PERCOCET [Concomitant]
  11. CEFTIN [Concomitant]
  12. CIPROFLOXACIN HCL [Concomitant]
  13. LACTULOSE [Concomitant]

REACTIONS (10)
  - CHILLS [None]
  - EAR PAIN [None]
  - FEBRILE NEUTROPENIA [None]
  - MALIGNANT NEOPLASM PROGRESSION [None]
  - OEDEMA PERIPHERAL [None]
  - OTORRHOEA [None]
  - OXYGEN SATURATION DECREASED [None]
  - PLATELET COUNT DECREASED [None]
  - PNEUMONIA [None]
  - SEPSIS [None]
